FAERS Safety Report 7463809-6 (Version None)
Quarter: 2011Q2

REPORT INFORMATION
  Report Type: 
  Country: None (occurrence: None)
  Receive Date: 20110506
  Receipt Date: 20110408
  Transmission Date: 20111010
  Serious: Yes (Hospitalization, Other)
  Sender: FDA-Public Use
  Company Number: US-BAYER-201041671NA

PATIENT
  Age: 26 Year
  Sex: Female
  Weight: 63.946 kg

DRUGS (9)
  1. ZITHROMAX [Concomitant]
  2. NSAID'S [Concomitant]
  3. YAZ [Suspect]
     Indication: PREMENSTRUAL SYNDROME
     Dosage: UNK
     Route: 048
     Dates: start: 20070920, end: 20071203
  4. METHYLPREDNISOLONE [Concomitant]
  5. YAZ [Suspect]
     Dosage: UNK
     Dates: start: 20080314, end: 20080731
  6. VICODIN [Concomitant]
  7. YASMIN [Suspect]
  8. YASMIN [Suspect]
     Indication: PREMENSTRUAL SYNDROME
     Dosage: UNK
     Route: 048
     Dates: start: 20071220, end: 20080216
  9. SOMA [Concomitant]

REACTIONS (1)
  - PULMONARY EMBOLISM [None]
